FAERS Safety Report 5658344-1 (Version None)
Quarter: 2008Q1

REPORT INFORMATION
  Report Type: 
  Country: None (occurrence: None)
  Receive Date: 20080310
  Receipt Date: 20070402
  Transmission Date: 20080703
  Serious: No
  Sender: FDA-Public Use
  Company Number: US-BAYER-200710361BCC

PATIENT
  Age: 43 Year
  Sex: Female
  Weight: 91 kg

DRUGS (3)
  1. MIDOL [Suspect]
     Indication: DYSMENORRHOEA
     Dosage: TOTAL DAILY DOSE: 440 MG  UNIT DOSE: 220 MG
     Route: 048
     Dates: start: 20070124
  2. MIDOL [Suspect]
     Dosage: TOTAL DAILY DOSE: 220 MG  UNIT DOSE: 220 MG
     Route: 048
     Dates: start: 20070125
  3. MIDOL [Suspect]
     Dosage: TOTAL DAILY DOSE: 220 MG  UNIT DOSE: 220 MG
     Route: 048
     Dates: start: 20070123

REACTIONS (5)
  - DYSPEPSIA [None]
  - ENZYME ABNORMALITY [None]
  - NAUSEA [None]
  - SOMNOLENCE [None]
  - STOMACH DISCOMFORT [None]
